FAERS Safety Report 9660563 (Version 3)
Quarter: 2013Q4

REPORT INFORMATION
  Report Type: Spontaneous
  Country: JP (occurrence: JP)
  Receive Date: 20131031
  Receipt Date: 20131118
  Transmission Date: 20140711
  Serious: Yes (Hospitalization)
  Sender: FDA-Public Use
  Company Number: JP-PFIZER INC-2013306213

PATIENT
  Age: 73 Year
  Sex: Female

DRUGS (4)
  1. HALCION [Suspect]
     Indication: SUICIDE ATTEMPT
     Dosage: 1.25 G, SINGLE
     Route: 048
     Dates: start: 20131024
  2. AMLODIN [Suspect]
     Indication: SUICIDE ATTEMPT
     Dosage: 57.5 MG, SINGLE
     Route: 048
     Dates: start: 20131024
  3. ROHYPNOL [Suspect]
     Indication: SUICIDE ATTEMPT
     Dosage: 25 MG, SINGLE
     Route: 048
     Dates: start: 20131024
  4. LUNESTA [Suspect]
     Indication: SUICIDE ATTEMPT
     Dosage: 34 MG, SINGLE
     Route: 048
     Dates: start: 20131024

REACTIONS (2)
  - Overdose [Recovered/Resolved]
  - Suicide attempt [Recovered/Resolved]
